FAERS Safety Report 6182795-2 (Version None)
Quarter: 2009Q2

REPORT INFORMATION
  Report Type: 
  Country: None (occurrence: None)
  Receive Date: 20090507
  Receipt Date: 20090428
  Transmission Date: 20091009
  Serious: Yes (Other)
  Sender: FDA-Public Use
  Company Number: US-CELGENEUS-163-21880-09021677

PATIENT
  Sex: Female

DRUGS (4)
  1. REVLIMID [Suspect]
     Indication: MULTIPLE MYELOMA
     Route: 048
     Dates: start: 20080201
  2. REVLIMID [Suspect]
     Route: 048
     Dates: start: 20070801, end: 20071101
  3. REVLIMID [Suspect]
     Route: 048
     Dates: start: 20070501, end: 20070701
  4. REVLIMID [Suspect]
     Route: 048
     Dates: start: 20090302

REACTIONS (1)
  - CENTRAL NERVOUS SYSTEM LESION [None]
